FAERS Safety Report 24429227 (Version 1)
Quarter: 2024Q4

REPORT INFORMATION
  Report Type: Spontaneous
  Country: GB (occurrence: GB)
  Receive Date: 20241011
  Receipt Date: 20241011
  Transmission Date: 20250115
  Serious: Yes (Death, Hospitalization, Other)
  Sender: PURDUE
  Company Number: GB-PFIZER INC-202400267655

PATIENT
  Age: 75 Year
  Sex: Male

DRUGS (2)
  1. OXYCODONE HYDROCHLORIDE [Suspect]
     Active Substance: OXYCODONE HYDROCHLORIDE
     Indication: Product used for unknown indication
     Dosage: UNK
     Route: 065
  2. MIDAZOLAM [Suspect]
     Active Substance: MIDAZOLAM
     Indication: Product used for unknown indication
     Dosage: UNK
     Route: 065

REACTIONS (7)
  - Neoplasm malignant [Fatal]
  - Respiratory arrest [Unknown]
  - Pain [Unknown]
  - Functional gastrointestinal disorder [Unknown]
  - Mouth ulceration [Unknown]
  - Candida infection [Unknown]
  - Gastrointestinal pain [Unknown]
